FAERS Safety Report 11179508 (Version 1)
Quarter: 2015Q2

REPORT INFORMATION
  Report Type: Spontaneous
  Country: US (occurrence: US)
  Receive Date: 20150611
  Receipt Date: 20150611
  Transmission Date: 20150821
  Serious: No
  Sender: FDA-Public Use
  Company Number: US-009507513-1506USA005588

PATIENT
  Sex: Male

DRUGS (2)
  1. BELSOMRA [Suspect]
     Active Substance: SUVOREXANT
     Indication: INSOMNIA
     Dosage: 10 MG/ ONE AT NIGHT
     Route: 048
     Dates: start: 20150601, end: 20150601
  2. BELSOMRA [Suspect]
     Active Substance: SUVOREXANT
     Dosage: 15MG(ONE WHOLE 10MG TABLET AS WELL AS A SPLIT 10MG TABLET), AT NIGHT
     Route: 048
     Dates: start: 201506, end: 201506

REACTIONS (2)
  - Middle insomnia [Unknown]
  - Wrong technique in drug usage process [Unknown]

NARRATIVE: CASE EVENT DATE: 201506
